FAERS Safety Report 15835074 (Version 1)
Quarter: 2019Q1

REPORT INFORMATION
  Report Type: Spontaneous
  Country: US (occurrence: US)
  Receive Date: 20190116
  Receipt Date: 20190116
  Transmission Date: 20190417
  Serious: No
  Sender: FDA-Public Use
  Company Number: US-CHILTERN-US-2018-000187

PATIENT
  Sex: Male

DRUGS (4)
  1. TIMOLOL MALEATE. [Concomitant]
     Active Substance: TIMOLOL MALEATE
     Indication: VISUAL ACUITY REDUCED
  2. TIMOLOL MALEATE. [Concomitant]
     Active Substance: TIMOLOL MALEATE
     Indication: OCULAR HYPERTENSION
     Dosage: UNK
     Route: 047
  3. RHOPRESSA [Suspect]
     Active Substance: NETARSUDIL MESYLATE
     Indication: OCULAR HYPERTENSION
     Dosage: UNK, UNK
     Route: 047
  4. RHOPRESSA [Suspect]
     Active Substance: NETARSUDIL MESYLATE
     Indication: VISUAL ACUITY REDUCED

REACTIONS (2)
  - Conjunctival hyperaemia [Unknown]
  - Visual acuity reduced [Unknown]
